FAERS Safety Report 13204969 (Version 2)
Quarter: 2017Q1

REPORT INFORMATION
  Report Type: Report from Study
  Country: MX (occurrence: MX)
  Receive Date: 20170209
  Receipt Date: 20170213
  Transmission Date: 20170428
  Serious: Yes (Hospitalization)
  Sender: FDA-Public Use
  Company Number: MX-UCBSA-2017004757

PATIENT
  Age: 8 Month
  Sex: Female
  Weight: 11 kg

DRUGS (5)
  1. VALPROATE MAGNESIUM [Concomitant]
     Active Substance: VALPROATE MAGNESIUM
     Indication: EPILEPSY
     Dosage: 2.5ML OR 3ML/12 HRS
     Dates: start: 201401
  2. LEVETIRACETAM. [Suspect]
     Active Substance: LEVETIRACETAM
     Indication: EPILEPSY
     Dosage: 1.5 ML, 2X/DAY (BID)
     Dates: start: 201401
  3. HAEMOPHILUS INFLUENZAE [Concomitant]
     Active Substance: HAEMOPHILUS INFLUENZAE TYPE B
     Indication: LUNG INFECTION
     Dosage: UNK
     Dates: start: 201611
  4. LEVETIRACETAM. [Suspect]
     Active Substance: LEVETIRACETAM
     Dosage: 2 ML, 2X/DAY (BID)
     Dates: start: 2015
  5. TOPIRAMATE. [Concomitant]
     Active Substance: TOPIRAMATE
     Indication: SEIZURE
     Dosage: 1 AND ? OF A TABLET/12 HRS
     Dates: start: 2014

REACTIONS (7)
  - Febrile convulsion [Recovered/Resolved]
  - Drug ineffective [Unknown]
  - Lung infection [Unknown]
  - Kidney infection [Unknown]
  - Intentional product misuse [Unknown]
  - Seizure [Not Recovered/Not Resolved]
  - Pyrexia [Recovered/Resolved]

NARRATIVE: CASE EVENT DATE: 201401
